FAERS Safety Report 6161958-6 (Version None)
Quarter: 2009Q2

REPORT INFORMATION
  Report Type: 
  Country: None (occurrence: None)
  Receive Date: 20090417
  Receipt Date: 20090417
  Transmission Date: 20091009
  Serious: Yes (Other)
  Sender: FDA-Public Use
  Company Number: None

PATIENT
  Age: 19 Year
  Sex: Female
  Weight: 45.3597 kg

DRUGS (2)
  1. DEPO-PROVERA [Suspect]
     Indication: CONTRACEPTION
     Dosage: 104MG TWICE CUTANEOUS
     Route: 003
     Dates: start: 20070601, end: 20071201
  2. DEPO-PROVERA [Suspect]
     Indication: CONTRACEPTION
     Dosage: 400MG ONCE CUTANEOUS
     Route: 003
     Dates: start: 20070101, end: 20081001

REACTIONS (8)
  - ABDOMINAL PAIN UPPER [None]
  - CONFUSIONAL STATE [None]
  - DIZZINESS [None]
  - FEELING OF BODY TEMPERATURE CHANGE [None]
  - HEADACHE [None]
  - HOT FLUSH [None]
  - NAUSEA [None]
  - PANIC ATTACK [None]
